FAERS Safety Report 10562286 (Version 1)
Quarter: 2014Q4

REPORT INFORMATION
  Report Type: Spontaneous
  Country: US (occurrence: None)
  Receive Date: 20141031
  Receipt Date: 20141031
  Transmission Date: 20150529
  Serious: Yes (Other)
  Sender: FDA-Public Use
  Company Number: ADR-2014-02001

PATIENT
  Age: 40 Year
  Sex: Female

DRUGS (3)
  1. BACLOFEN. [Suspect]
     Active Substance: BACLOFEN
     Indication: PAIN
  2. BUPIVACAINE [Suspect]
     Active Substance: BUPIVACAINE
  3. DILAUDID [Suspect]
     Active Substance: HYDROMORPHONE HYDROCHLORIDE

REACTIONS (8)
  - Cardiac disorder [None]
  - Limb discomfort [None]
  - Impaired gastric emptying [None]
  - Generalised tonic-clonic seizure [None]
  - Tremor [None]
  - Abasia [None]
  - Device failure [None]
  - Bone disorder [None]
